FAERS Safety Report 24843085 (Version 1)
Quarter: 2025Q1

REPORT INFORMATION
  Report Type: Report from Study
  Country: US (occurrence: US)
  Receive Date: 20250115
  Receipt Date: 20250115
  Transmission Date: 20250409
  Serious: No
  Sender: HRA PHARMA
  Company Number: US-ORG100014127-2024000233

PATIENT
  Age: 67 Year
  Sex: Female

DRUGS (19)
  1. LYSODREN [Suspect]
     Active Substance: MITOTANE
     Indication: Adrenal gland cancer
     Dosage: 500 MG; 4 TABLETS 2 TIMES DAILY, AS PER TAPER
     Route: 048
     Dates: start: 20240724
  2. LYSODREN [Suspect]
     Active Substance: MITOTANE
     Indication: Adrenal gland cancer
     Dosage: 1500MG TWICE DAILY
     Route: 048
  3. ATORVASTATIN TAB 20MG [Concomitant]
     Indication: Product used for unknown indication
  4. CALCIUM TAB 500MG [Concomitant]
     Indication: Product used for unknown indication
  5. COQ10 CAP 100MG [Concomitant]
     Indication: Product used for unknown indication
  6. GLUCOSAMINE TAB 750MG [Concomitant]
     Indication: Product used for unknown indication
  7. HYDROXYZ HCL TAB 25MG [Concomitant]
     Indication: Product used for unknown indication
  8. MIRALAX POW 3350 NF [Concomitant]
     Indication: Constipation
  9. MULTIVITAMIN TAB [Concomitant]
     Indication: Product used for unknown indication
  10. NALOXONE HCL SPR 4MG [Concomitant]
     Indication: Product used for unknown indication
  11. ONDANSETRON [Concomitant]
     Active Substance: ONDANSETRON
     Indication: Product used for unknown indication
  12. OXYCODONE [Concomitant]
     Active Substance: OXYCODONE
     Indication: Product used for unknown indication
  13. PANTOPRAZOLE TAB 40MG [Concomitant]
     Indication: Product used for unknown indication
  14. PREDNISONE [Concomitant]
     Active Substance: PREDNISONE
     Indication: Product used for unknown indication
  15. PREDNISONE [Concomitant]
     Active Substance: PREDNISONE
     Indication: Product used for unknown indication
     Dosage: 7.5MG QAM, 5MG QPM
  16. PREGABALIN CAP 75MG [Concomitant]
     Indication: Product used for unknown indication
  17. VAGIFEM TAB 10MCG [Concomitant]
     Indication: Product used for unknown indication
  18. VITAMIN B50 TAB COMPLEX [Concomitant]
     Indication: Product used for unknown indication
  19. VITAMIN D CAP 50000UNT [Concomitant]
     Indication: Product used for unknown indication

REACTIONS (3)
  - Tremor [Not Recovered/Not Resolved]
  - Brain fog [Not Recovered/Not Resolved]
  - Fatigue [Recovering/Resolving]
